FAERS Safety Report 6975850-8 (Version None)
Quarter: 2010Q3

REPORT INFORMATION
  Report Type: 
  Country: None (occurrence: None)
  Receive Date: 20100910
  Receipt Date: 20090413
  Transmission Date: 20110219
  Serious: No
  Sender: FDA-Public Use
  Company Number: US-WYE-H08942409

PATIENT
  Age: 90 Year
  Sex: Male

DRUGS (9)
  1. PRISTIQ [Suspect]
     Indication: DEPRESSION
     Route: 048
     Dates: start: 20090401
  2. ACEBUTOLOL [Concomitant]
  3. DEMADEX [Concomitant]
  4. LIDODERM [Concomitant]
  5. ATIVAN [Concomitant]
  6. REMERON [Concomitant]
  7. FENTANYL CITRATE [Concomitant]
  8. PERCOCET [Concomitant]
  9. PRILOSEC [Concomitant]

REACTIONS (2)
  - BACK PAIN [None]
  - CONDITION AGGRAVATED [None]
